FAERS Safety Report 6284810-4 (Version None)
Quarter: 2009Q3

REPORT INFORMATION
  Report Type: 
  Country: None (occurrence: None)
  Receive Date: 20090727
  Receipt Date: 20090717
  Transmission Date: 20100115
  Serious: Yes (Hospitalization, Other)
  Sender: FDA-Public Use
  Company Number: JP-ABBOTT-09P-087-0561416-00

PATIENT
  Sex: Female
  Weight: 45 kg

DRUGS (17)
  1. KLARICID [Suspect]
     Indication: MYCOBACTERIAL INFECTION
     Dosage: 200 MG TABLETS
     Route: 048
     Dates: start: 20081017, end: 20090208
  2. KLARICID [Interacting]
     Indication: ABDOMINAL MASS
     Route: 048
     Dates: start: 20030301, end: 20081016
  3. KLARICID [Interacting]
     Route: 048
     Dates: start: 20090301
  4. METHOTREXATE [Interacting]
     Indication: RHEUMATOID ARTHRITIS
     Dosage: 4MG/ 1WEEK
     Route: 048
     Dates: start: 20030617
  5. METHOTREXATE [Interacting]
     Dosage: 8MG/ 1WEEK
     Dates: start: 20031210, end: 20090208
  6. PREDNISOLONE [Concomitant]
     Indication: RHEUMATOID ARTHRITIS
     Route: 048
     Dates: start: 20080530
  7. PREDNISOLONE [Concomitant]
     Route: 048
     Dates: start: 20080328, end: 20080329
  8. PREDNISOLONE [Concomitant]
     Route: 048
     Dates: end: 20080527
  9. FAMOTIDINE [Concomitant]
     Indication: GASTRITIS
     Route: 048
     Dates: start: 20040601
  10. ALFACALCIDOL [Concomitant]
     Indication: OSTEOPOROSIS
     Route: 048
     Dates: start: 20031111
  11. CALCIUM L-ASPARTATE [Concomitant]
     Indication: OSTEOPOROSIS
     Route: 048
     Dates: start: 20031111
  12. METHOTREXATE [Concomitant]
     Route: 048
     Dates: start: 20030617, end: 20031209
  13. VALSARTAN [Concomitant]
     Indication: HYPERTENSION
     Route: 048
     Dates: start: 20050127
  14. SODIUM RISEDRONATE HYDRATE [Concomitant]
     Indication: OSTEOPOROSIS
     Route: 048
     Dates: start: 20031210
  15. ACTONEL [Concomitant]
     Indication: OSTEOPOROSIS
     Route: 048
     Dates: start: 20071129, end: 20090205
  16. FLOMAX [Concomitant]
     Indication: NASOPHARYNGITIS
     Route: 048
     Dates: start: 20081002, end: 20081009
  17. NON-PYRINE COLD PREPARATION [Concomitant]
     Indication: NASOPHARYNGITIS
     Route: 048
     Dates: start: 20081002, end: 20081009

REACTIONS (12)
  - ABDOMINAL MASS [None]
  - ALOPECIA [None]
  - ATYPICAL MYCOBACTERIAL INFECTION [None]
  - DECREASED APPETITE [None]
  - DISSEMINATED INTRAVASCULAR COAGULATION [None]
  - DRUG INTERACTION [None]
  - DYSGEUSIA [None]
  - GENERAL PHYSICAL HEALTH DETERIORATION [None]
  - HISTIOCYTOSIS HAEMATOPHAGIC [None]
  - NAUSEA [None]
  - PANCYTOPENIA [None]
  - VOMITING [None]
